APPROVED DRUG PRODUCT: METHENAMINE HIPPURATE
Active Ingredient: METHENAMINE HIPPURATE
Strength: 1GM
Dosage Form/Route: TABLET;ORAL
Application: A076411 | Product #001
Applicant: IMPAX LABORATORIES INC
Approved: Jun 20, 2003 | RLD: No | RS: No | Type: DISCN